FAERS Safety Report 9638997 (Version 1)
Quarter: 2013Q4

REPORT INFORMATION
  Report Type: Spontaneous
  Country: GB (occurrence: GB)
  Receive Date: 20131022
  Receipt Date: 20131022
  Transmission Date: 20140711
  Serious: Yes (Other)
  Sender: FDA-Public Use
  Company Number: GB-TEVA-438016ISR

PATIENT
  Age: 38 Year
  Sex: Female
  Weight: 70 kg

DRUGS (1)
  1. NAPROXEN [Suspect]
     Dosage: 1600 MILLIGRAM DAILY;
     Route: 048
     Dates: start: 201307

REACTIONS (3)
  - Depression [Not Recovered/Not Resolved]
  - Agitation [Not Recovered/Not Resolved]
  - Insomnia [Not Recovered/Not Resolved]
